FAERS Safety Report 8270235-9 (Version None)
Quarter: 2012Q2

REPORT INFORMATION
  Report Type: 
  Country: None (occurrence: None)
  Receive Date: 20120410
  Receipt Date: 20120402
  Transmission Date: 20120825
  Serious: Yes (Other)
  Sender: FDA-Public Use
  Company Number: US-RB-037295-12

PATIENT
  Sex: Female

DRUGS (1)
  1. MUCINEX DM [Suspect]
     Indication: PRODUCT USED FOR UNKNOWN INDICATION
     Dosage: TOOK ONE TABLET ON 01-APR-2012 AND ANOTHER ON 02-APR-2012 AT 12 AM
     Route: 048
     Dates: start: 20120401

REACTIONS (12)
  - EYE IRRITATION [None]
  - HEADACHE [None]
  - VISUAL IMPAIRMENT [None]
  - LACRIMATION INCREASED [None]
  - SWELLING FACE [None]
  - CONJUNCTIVITIS [None]
  - LIP SWELLING [None]
  - NAUSEA [None]
  - HYPERSENSITIVITY [None]
  - RASH [None]
  - OCULAR HYPERAEMIA [None]
  - EYE DISCHARGE [None]
